FAERS Safety Report 6060464-7 (Version None)
Quarter: 2009Q1

REPORT INFORMATION
  Report Type: 
  Country: None (occurrence: None)
  Receive Date: 20090129
  Receipt Date: 20090120
  Transmission Date: 20090719
  Serious: Yes (Death)
  Sender: FDA-Public Use
  Company Number: 2006-00540

PATIENT
  Age: 46 Year
  Sex: Male
  Weight: 67 kg

DRUGS (9)
  1. VELCADE [Suspect]
     Indication: PERIPHERAL T-CELL LYMPHOMA UNSPECIFIED
     Dosage: 2.70 MG, INTRAVENOUS
     Route: 042
     Dates: start: 20060206, end: 20060224
  2. BLEOMYCIN SULFATE [Suspect]
     Indication: PERIPHERAL T-CELL LYMPHOMA UNSPECIFIED
     Dosage: 9.90 MG, INTRAVENOUS
     Route: 042
     Dates: start: 20060206, end: 20060224
  3. CYCLOPHOSPHAMIDE [Suspect]
     Dosage: 2180.00 MG, INTRAVENOUS
     Route: 042
     Dates: start: 20060206, end: 20060221
  4. DOXORUBICIN HCL [Suspect]
     Indication: PERIPHERAL T-CELL LYMPHOMA UNSPECIFIED
     Dosage: 136.00 MG, INTRAVENOUS
     Route: 042
     Dates: start: 20060206, end: 20060221
  5. ELDISINE [Suspect]
     Indication: PERIPHERAL T-CELL LYMPHOMA UNSPECIFIED
     Dosage: 3.60 MG, INTRAVENOUS
     Route: 042
     Dates: start: 20060206, end: 20060224
  6. PREDNISONE [Suspect]
     Dosage: 100.00 MG, ORAL
     Route: 048
     Dates: start: 20060206, end: 20060224
  7. METHOTREXATE [Suspect]
     Indication: PERIPHERAL T-CELL LYMPHOMA UNSPECIFIED
     Dosage: 15.00 MG, INTRATHECAL
     Route: 037
     Dates: start: 20060207, end: 20060224
  8. PREDNISOLONE TAB [Suspect]
     Dosage: 50 MG, INTRATHECAL
     Route: 037
     Dates: start: 20060207, end: 20060224
  9. GRANOCYTE 13-34(LENOGRASTIM) INJECTION, 150MG/M2 [Suspect]
     Indication: PERIPHERAL T-CELL LYMPHOMA UNSPECIFIED
     Dosage: SUBCUTANEOUS
     Route: 058
     Dates: start: 20060211, end: 20060302

REACTIONS (5)
  - BLOOD SODIUM DECREASED [None]
  - HAEMOGLOBIN DECREASED [None]
  - PLATELET COUNT DECREASED [None]
  - SUDDEN DEATH [None]
  - WHITE BLOOD CELL COUNT INCREASED [None]
